FAERS Safety Report 10128285 (Version 1)
Quarter: 2014Q2

REPORT INFORMATION
  Report Type: Spontaneous
  Country: US (occurrence: US)
  Receive Date: 20140428
  Receipt Date: 20140428
  Transmission Date: 20141212
  Serious: No
  Sender: FDA-Public Use
  Company Number: US-BIOGENIDEC-2014BI036147

PATIENT
  Age: 56 Year
  Sex: Female

DRUGS (10)
  1. TECFIDERA [Suspect]
     Indication: MULTIPLE SCLEROSIS
     Route: 048
     Dates: start: 201310, end: 20140306
  2. AMPHETAMINE DEXTROAMPHETAMINE ER [Concomitant]
     Route: 048
  3. NAMENDA [Concomitant]
     Route: 048
  4. VENLAFAXINE HCL ER [Concomitant]
     Route: 048
  5. VESICARE [Concomitant]
     Route: 048
  6. DIAZEPAM [Concomitant]
     Route: 048
  7. HYDROCODONE ACETAMINOPHEN [Concomitant]
     Indication: PAIN
     Route: 048
  8. LOSARTAN POTASSIUM HCTZ [Concomitant]
     Route: 048
  9. OMPERAZOLE [Concomitant]
     Route: 048
  10. COPAXONE [Concomitant]
     Indication: MULTIPLE SCLEROSIS

REACTIONS (2)
  - Adverse event [Unknown]
  - Asthenia [Unknown]
